FAERS Safety Report 4533506-5 (Version None)
Quarter: 2004Q4

REPORT INFORMATION
  Report Type: 
  Country: None (occurrence: None)
  Receive Date: 20041221
  Receipt Date: 20041119
  Transmission Date: 20050328
  Serious: Yes (Hospitalization, Disabling)
  Sender: FDA-Public Use
  Company Number: US-MERCK-0411USA03353

PATIENT
  Age: 75 Year
  Sex: Female

DRUGS (11)
  1. VIOXX [Suspect]
     Indication: ARTHRITIS
     Route: 048
     Dates: start: 20030122
  2. VIOXX [Suspect]
     Indication: PAIN IN EXTREMITY
     Route: 048
     Dates: start: 20030808, end: 20040826
  3. VIOXX [Suspect]
     Route: 048
     Dates: start: 20030122
  4. ACCUPRIL [Concomitant]
     Route: 048
  5. LOPRESSOR [Concomitant]
     Route: 065
  6. METFORMIN [Concomitant]
     Route: 065
  7. FUROSEMIDE [Concomitant]
     Route: 065
  8. [THERAPY UNSPECIFIED] [Concomitant]
     Route: 065
  9. SYNTHROID [Concomitant]
     Route: 065
  10. ZOCOR [Concomitant]
     Indication: HYPERLIPIDAEMIA
     Route: 048
  11. VIOXX [Suspect]
     Route: 048
     Dates: start: 20030808, end: 20040826

REACTIONS (9)
  - ANAEMIA [None]
  - ATRIAL FIBRILLATION [None]
  - ATRIAL FLUTTER [None]
  - DIZZINESS [None]
  - INGROWING NAIL [None]
  - OEDEMA PERIPHERAL [None]
  - ONYCHOMYCOSIS [None]
  - PERIPHERAL VASCULAR DISORDER [None]
  - TACHYCARDIA [None]
